FAERS Safety Report 5205352-0 (Version None)
Quarter: 2007Q1

REPORT INFORMATION
  Report Type: 
  Country: None (occurrence: None)
  Receive Date: 20070110
  Receipt Date: 20070104
  Transmission Date: 20070707
  Serious: Yes (Hospitalization)
  Sender: FDA-Public Use
  Company Number: CO-BRISTOL-MYERS SQUIBB COMPANY-13620299

PATIENT
  Age: 73 Year
  Sex: Female

DRUGS (6)
  1. PACLITAXEL [Suspect]
     Route: 042
  2. ZOLEDRONIC ACID [Concomitant]
  3. RANITIDINE [Concomitant]
     Indication: PREMEDICATION
  4. DEXAMETHASONE [Concomitant]
     Indication: PREMEDICATION
  5. ONDANSETRON [Concomitant]
     Indication: PREMEDICATION
  6. CLEMASTINE FUMARATE [Concomitant]
     Indication: PREMEDICATION

REACTIONS (5)
  - CHILLS [None]
  - HYPERHIDROSIS [None]
  - HYPOTENSION [None]
  - INCONTINENCE [None]
  - RESPIRATORY ARREST [None]
